FAERS Safety Report 5928110-8 (Version None)
Quarter: 2008Q4

REPORT INFORMATION
  Report Type: 
  Country: None (occurrence: None)
  Receive Date: 20081020
  Receipt Date: 20081001
  Transmission Date: 20090506
  Serious: No
  Sender: FDA-Public Use
  Company Number: 8037652

PATIENT

DRUGS (1)
  1. KEPPRA [Suspect]

REACTIONS (1)
  - UNEVALUABLE EVENT [None]
